FAERS Safety Report 4754151-2 (Version None)
Quarter: 2005Q3

REPORT INFORMATION
  Report Type: 
  Country: None (occurrence: None)
  Receive Date: 20050826
  Receipt Date: 19961128
  Transmission Date: 20060218
  Serious: Yes (Hospitalization)
  Sender: FDA-Public Use
  Company Number: JP-ABBOTT-05P-087-0308298-00

PATIENT
  Age: 80 Year
  Sex: Female

DRUGS (15)
  1. ERYTHROMYCIN [Suspect]
     Indication: ASTHMA
     Route: 048
     Dates: start: 19950810
  2. SPARFLOXACIN [Suspect]
     Indication: INFECTION PROPHYLAXIS
     Route: 048
     Dates: start: 19961114, end: 19961114
  3. PREDNISOLONE [Suspect]
     Indication: ASTHMA
     Route: 048
     Dates: start: 19950215
  4. FAMOTIDINE [Concomitant]
     Indication: ABDOMINAL DISCOMFORT
     Route: 048
     Dates: start: 19950215
  5. THEOPHYLLINE [Concomitant]
     Indication: ASTHMA
     Route: 048
     Dates: start: 19950215
  6. REPIRINAST [Concomitant]
     Indication: ASTHMA
     Route: 048
     Dates: start: 19950215
  7. CARBOCYSTEINE [Concomitant]
     Indication: PRODUCTIVE COUGH
     Route: 048
     Dates: start: 19950215
  8. AMBROXOL HYDROCHLORIDE [Concomitant]
     Indication: PRODUCTIVE COUGH
     Route: 048
     Dates: start: 19950215
  9. GLIBENCLAMIDE [Concomitant]
     Indication: DIABETES MELLITUS
     Route: 048
     Dates: start: 19950215
  10. BECLOMETHASONE DIPROPIONATE [Concomitant]
     Indication: ASTHMA
     Dosage: DOSE: 400 RG
     Route: 055
     Dates: start: 19950215
  11. PROCATEROL HCL [Concomitant]
     Indication: ASTHMA
     Dosage: DOSE: 80 RG
     Route: 055
     Dates: start: 19950215
  12. KETOPROFEN [Concomitant]
     Indication: DRUG USE FOR UNKNOWN INDICATION
     Route: 061
     Dates: start: 19950215
  13. PRANLUKAST HYDRATE [Concomitant]
     Indication: ASTHMA
     Route: 048
     Dates: start: 19960622
  14. PHOSPHOMYCIN CALCIUM [Concomitant]
     Indication: INFECTION PROPHYLAXIS
     Route: 042
     Dates: start: 19961113, end: 19961114
  15. TRIAZOLAM [Concomitant]
     Indication: INSOMNIA
     Route: 048
     Dates: start: 19961023

REACTIONS (6)
  - ANOREXIA [None]
  - ATRIOVENTRICULAR BLOCK COMPLETE [None]
  - BLOOD POTASSIUM DECREASED [None]
  - BRADYCARDIA [None]
  - TORSADE DE POINTES [None]
  - VENTRICULAR EXTRASYSTOLES [None]
